FAERS Safety Report 4471117-0 (Version None)
Quarter: 2004Q4

REPORT INFORMATION
  Report Type: 
  Country: None (occurrence: None)
  Receive Date: 20041008
  Receipt Date: 20040923
  Transmission Date: 20050328
  Serious: Yes (Death)
  Sender: FDA-Public Use
  Company Number: 2004S1002445

PATIENT
  Age: 53 Year
  Sex: Male

DRUGS (5)
  1. CLOZAPINE [Suspect]
     Dosage: 200MG Q AM AND 300MG Q HS ORAL
     Route: 048
     Dates: start: 20020531
  2. CHEMOTHERAPY [Concomitant]
  3. RADIOTHERAPY [Concomitant]
  4. FLUPHENAZINE DECONOATE [Concomitant]
  5. DOCUSATE [Concomitant]

REACTIONS (1)
  - CARCINOMA [None]
